FAERS Safety Report 7292501-6 (Version None)
Quarter: 2011Q1

REPORT INFORMATION
  Report Type: 
  Country: None (occurrence: None)
  Receive Date: 20110215
  Receipt Date: 20110208
  Transmission Date: 20110831
  Serious: Yes (Hospitalization)
  Sender: FDA-Public Use
  Company Number: DK-PFIZER INC-2011028766

PATIENT
  Sex: Female
  Weight: 90 kg

DRUGS (4)
  1. ELTROXIN [Concomitant]
     Dosage: 100 MG, 1X/DAY
     Route: 048
  2. SOMATROPIN [Suspect]
     Indication: HYPOPITUITARISM
  3. TRISEKVENS [Concomitant]
     Dosage: UNK
     Route: 048
  4. HYDROCORTISONE [Concomitant]
     Dosage: 20 MG, 1X/DAY
     Route: 048

REACTIONS (1)
  - UTERINE POLYP [None]
